FAERS Safety Report 8871292 (Version 1)
Quarter: 2012Q4

REPORT INFORMATION
  Report Type: Spontaneous
  Country: US (occurrence: None)
  Receive Date: 20121026
  Receipt Date: 20121026
  Transmission Date: 20130627
  Serious: Yes (Disabling)
  Sender: FDA-Public Use
  Company Number: None

PATIENT
  Age: 59 Year
  Sex: Female
  Weight: 64.86 kg

DRUGS (3)
  1. LARIAM [Suspect]
     Indication: MALARIA
     Dosage: 1 pill weekly
     Dates: start: 20010412, end: 20021031
  2. LEXAPRO [Concomitant]
  3. AMBIEN [Concomitant]

REACTIONS (9)
  - Erythema [None]
  - Anxiety [None]
  - Fatigue [None]
  - Insomnia [None]
  - Palpitations [None]
  - Gastrointestinal disorder [None]
  - Hot flush [None]
  - Depression [None]
  - Panic attack [None]
